FAERS Safety Report 21261765 (Version 1)
Quarter: 2022Q3

REPORT INFORMATION
  Report Type: Spontaneous
  Country: CN (occurrence: CN)
  Receive Date: 20220827
  Receipt Date: 20220827
  Transmission Date: 20221027
  Serious: Yes (Hospitalization, Disabling, Other)
  Sender: FDA-Public Use
  Company Number: CN-SA-SAC20220825001054

PATIENT
  Age: 53 Year
  Sex: Male
  Weight: 62 kg

DRUGS (3)
  1. OXALIPLATIN [Suspect]
     Active Substance: OXALIPLATIN
     Indication: Hepatic cancer
     Dosage: 210 MG, 1X
     Route: 041
     Dates: start: 20220623, end: 20220623
  2. CAPECITABINE [Suspect]
     Active Substance: CAPECITABINE
     Indication: Hepatic cancer
     Dosage: 3 DF, BID
     Route: 048
     Dates: start: 20220623, end: 20220716
  3. SINTILIMAB [Suspect]
     Active Substance: SINTILIMAB
     Indication: Hepatic cancer
     Dosage: 200MG, 1X
     Route: 041
     Dates: start: 20220623, end: 20220623

REACTIONS (4)
  - Myocarditis [Recovering/Resolving]
  - Myelosuppression [Recovering/Resolving]
  - White blood cell count decreased [Recovering/Resolving]
  - Platelet count decreased [Recovering/Resolving]

NARRATIVE: CASE EVENT DATE: 20220716
